FAERS Safety Report 23105710 (Version 1)
Quarter: 2023Q4

REPORT INFORMATION
  Report Type: Spontaneous
  Country: US (occurrence: None)
  Receive Date: 20231023
  Receipt Date: 20231023
  Transmission Date: 20240110
  Serious: Yes (Hospitalization)
  Sender: FDA-Public Use
  Company Number: None

PATIENT
  Age: 52 Year
  Sex: Male
  Weight: 130 kg

DRUGS (1)
  1. SEMAGLUTIDE [Suspect]
     Active Substance: SEMAGLUTIDE
     Dates: start: 20230215, end: 20230321

REACTIONS (11)
  - Diarrhoea [None]
  - Anal incontinence [None]
  - Flatulence [None]
  - Eructation [None]
  - Adverse drug reaction [None]
  - Gastrointestinal infection [None]
  - Abdominal pain [None]
  - Product substitution issue [None]
  - Product quality issue [None]
  - Adverse food reaction [None]
  - Culture stool negative [None]

NARRATIVE: CASE EVENT DATE: 20230324
